FAERS Safety Report 5748210-5 (Version None)
Quarter: 2008Q2

REPORT INFORMATION
  Report Type: 
  Country: None (occurrence: None)
  Receive Date: 20080523
  Receipt Date: 20080516
  Transmission Date: 20081010
  Serious: Yes (Other)
  Sender: FDA-Public Use
  Company Number: AU-PFIZER INC-2008043928

PATIENT
  Sex: Female

DRUGS (2)
  1. SALAZOPYRIN [Suspect]
     Indication: RHEUMATOID ARTHRITIS
  2. METHOBLASTIN [Suspect]
     Indication: RHEUMATOID ARTHRITIS

REACTIONS (1)
  - SCLERODERMA [None]
